FAERS Safety Report 12180948 (Version 1)
Quarter: 2016Q1

REPORT INFORMATION
  Report Type: Spontaneous
  Country: US (occurrence: US)
  Receive Date: 20160315
  Receipt Date: 20160315
  Transmission Date: 20160526
  Serious: Yes (Other)
  Sender: FDA-Public Use
  Company Number: US-BAYER-2016-045282

PATIENT
  Age: 66 Year
  Sex: Male
  Weight: 77.98 kg

DRUGS (3)
  1. PLAVIX [Concomitant]
     Active Substance: CLOPIDOGREL BISULFATE
  2. BAYER GENUINE ASPIRIN [Suspect]
     Active Substance: ASPIRIN
     Indication: ANTICOAGULANT THERAPY
     Dosage: 3 DF, ONCE
     Route: 048
     Dates: start: 201510, end: 201510
  3. BAYER GENUINE ASPIRIN [Suspect]
     Active Substance: ASPIRIN
     Indication: ANTICOAGULANT THERAPY
     Dosage: 1 DF, QD
     Route: 048

REACTIONS (5)
  - Product use issue [None]
  - Myocardial infarction [None]
  - Product use issue [None]
  - Therapeutic response unexpected [None]
  - Wrong technique in product usage process [None]

NARRATIVE: CASE EVENT DATE: 201510
